FAERS Safety Report 11223398 (Version 2)
Quarter: 2015Q3

REPORT INFORMATION
  Report Type: Report from Study
  Country: AU (occurrence: AU)
  Receive Date: 20150627
  Receipt Date: 20150727
  Transmission Date: 20151125
  Serious: Yes (Other)
  Sender: FDA-Public Use
  Company Number: AU-TEVA-572575ISR

PATIENT
  Age: 48 Year
  Sex: Female

DRUGS (2)
  1. COPAXONE [Suspect]
     Active Substance: GLATIRAMER ACETATE
     Dosage: ON SATURDAY
     Route: 058
     Dates: start: 20150606
  2. COPAXONE [Suspect]
     Active Substance: GLATIRAMER ACETATE
     Dosage: ON MONDAY / WEDNESDAY / FRIDAY
     Route: 058

REACTIONS (1)
  - Dissociation [Recovered/Resolved]

NARRATIVE: CASE EVENT DATE: 20150613
